FAERS Safety Report 6742752-1 (Version None)
Quarter: 2010Q2

REPORT INFORMATION
  Report Type: 
  Country: None (occurrence: None)
  Receive Date: 20100525
  Receipt Date: 20100507
  Transmission Date: 20101027
  Serious: Yes (Other)
  Sender: FDA-Public Use
  Company Number: 1-22340160

PATIENT
  Sex: Male
  Weight: 23.587 kg

DRUGS (3)
  1. CETIRIZINE                                (OHM LABS) [Suspect]
     Indication: HYPERSENSITIVITY
     Dosage: 5 ML ONCE DAILY ORAL
     Route: 048
     Dates: start: 20090923, end: 20090927
  2. CETIRIZINE                                (OHM LABS) [Suspect]
     Indication: POSTNASAL DRIP
     Dosage: 5 ML ONCE DAILY ORAL
     Route: 048
     Dates: start: 20090923, end: 20090927
  3. MULTI-VITAMIN [Concomitant]

REACTIONS (3)
  - BONE PAIN [None]
  - DYSKINESIA [None]
  - TORTICOLLIS [None]
